FAERS Safety Report 9851683 (Version 2)
Quarter: 2014Q1

REPORT INFORMATION
  Report Type: Spontaneous
  Country: GE (occurrence: GE)
  Receive Date: 20140129
  Receipt Date: 20140207
  Transmission Date: 20141002
  Serious: Yes (Death, Other)
  Sender: FDA-Public Use
  Company Number: GE-ROCHE-1340875

PATIENT
  Sex: Female

DRUGS (1)
  1. ZELBORAF [Suspect]
     Indication: METASTATIC MALIGNANT MELANOMA
     Dosage: 8 TABLETS OF 240 MG VEMURAFENIB PER DAY
     Route: 048

REACTIONS (2)
  - Disease progression [Fatal]
  - Pneumonia [Unknown]
